FAERS Safety Report 9096240 (Version 1)
Quarter: 2013Q1

REPORT INFORMATION
  Report Type: Spontaneous
  Country: IN (occurrence: IN)
  Receive Date: 20130207
  Receipt Date: 20130207
  Transmission Date: 20140127
  Serious: Yes (Death)
  Sender: FDA-Public Use
  Company Number: IN-009507513-1302IND002837

PATIENT
  Age: 60 Year
  Sex: Male

DRUGS (2)
  1. VIRAFERONPEG [Suspect]
     Dosage: 80 MICROGRAM, 5 INJECTIONS TOTALLY
  2. REBETOL [Suspect]

REACTIONS (2)
  - Pyrexia [Fatal]
  - Asthenia [Fatal]
